FAERS Safety Report 17360133 (Version 12)
Quarter: 2021Q4

REPORT INFORMATION
  Report Type: Report from Study
  Country: JP (occurrence: JP)
  Receive Date: 20200203
  Receipt Date: 20211202
  Transmission Date: 20220303
  Serious: Yes (Death, Hospitalization, Other)
  Sender: FDA-Public Use
  Company Number: JP-CHUGAI-A2020004632ROCHE

PATIENT
  Age: 52 Year
  Sex: Male
  Weight: 45 kg

DRUGS (48)
  1. BEVACIZUMAB [Suspect]
     Active Substance: BEVACIZUMAB
     Indication: Rectal cancer
     Route: 041
     Dates: start: 20200109
  2. BEVACIZUMAB [Suspect]
     Active Substance: BEVACIZUMAB
     Route: 041
     Dates: start: 20200204
  3. BEVACIZUMAB [Suspect]
     Active Substance: BEVACIZUMAB
     Route: 041
     Dates: start: 20200225
  4. BEVACIZUMAB [Suspect]
     Active Substance: BEVACIZUMAB
     Route: 041
     Dates: start: 20200401
  5. BEVACIZUMAB [Suspect]
     Active Substance: BEVACIZUMAB
     Route: 041
     Dates: start: 20200422
  6. BEVACIZUMAB [Suspect]
     Active Substance: BEVACIZUMAB
     Route: 041
     Dates: start: 20200514
  7. BEVACIZUMAB [Suspect]
     Active Substance: BEVACIZUMAB
     Route: 041
     Dates: start: 20200610
  8. CAPECITABINE [Suspect]
     Active Substance: CAPECITABINE
     Indication: Rectal cancer
     Route: 048
     Dates: start: 20200109, end: 20200111
  9. CAPECITABINE [Suspect]
     Active Substance: CAPECITABINE
     Route: 048
     Dates: start: 20200204, end: 20200309
  10. CAPECITABINE [Suspect]
     Active Substance: CAPECITABINE
     Route: 048
     Dates: start: 20200225
  11. CAPECITABINE [Suspect]
     Active Substance: CAPECITABINE
     Route: 048
     Dates: start: 20200401, end: 20200505
  12. CAPECITABINE [Suspect]
     Active Substance: CAPECITABINE
     Route: 048
     Dates: start: 20200422
  13. CAPECITABINE [Suspect]
     Active Substance: CAPECITABINE
     Route: 048
     Dates: start: 20200514, end: 20200514
  14. CAPECITABINE [Suspect]
     Active Substance: CAPECITABINE
     Route: 048
     Dates: start: 20200610, end: 20200610
  15. IRINOTECAN HYDROCHLORIDE [Suspect]
     Active Substance: IRINOTECAN HYDROCHLORIDE
     Indication: Rectal cancer
     Dosage: DOSE INTERVAL UNCERTAINTY
     Route: 041
     Dates: start: 20200109
  16. IRINOTECAN HYDROCHLORIDE [Suspect]
     Active Substance: IRINOTECAN HYDROCHLORIDE
     Dosage: DOSE INTERVAL UNCERTAINTY
     Route: 041
     Dates: start: 20200204
  17. IRINOTECAN HYDROCHLORIDE [Suspect]
     Active Substance: IRINOTECAN HYDROCHLORIDE
     Dosage: DOSE INTERVAL UNCERTAINTY
     Route: 041
     Dates: start: 20200401
  18. IRINOTECAN HYDROCHLORIDE [Suspect]
     Active Substance: IRINOTECAN HYDROCHLORIDE
     Route: 041
     Dates: start: 20200514
  19. IRINOTECAN HYDROCHLORIDE [Suspect]
     Active Substance: IRINOTECAN HYDROCHLORIDE
     Route: 041
     Dates: start: 20200422
  20. OXALIPLATIN [Concomitant]
     Active Substance: OXALIPLATIN
     Indication: Rectal cancer
     Dosage: DOSE INTERVAL UNCERTAINTY
     Route: 041
     Dates: start: 20200109
  21. OXALIPLATIN [Concomitant]
     Active Substance: OXALIPLATIN
     Dosage: DOSE INTERVAL UNCERTAINTY
     Route: 041
     Dates: start: 20200204
  22. OXALIPLATIN [Concomitant]
     Active Substance: OXALIPLATIN
     Dosage: DOSE INTERVAL UNCERTAINTY
     Route: 041
     Dates: start: 20200401, end: 20200422
  23. OXALIPLATIN [Concomitant]
     Active Substance: OXALIPLATIN
     Route: 041
     Dates: start: 20200514, end: 20200514
  24. OXALIPLATIN [Concomitant]
     Active Substance: OXALIPLATIN
     Route: 041
     Dates: start: 20200422
  25. PALONOSETRON HYDROCHLORIDE [Concomitant]
     Active Substance: PALONOSETRON HYDROCHLORIDE
     Dosage: DOSE INTERVAL UNCERTAINTY
     Route: 041
     Dates: start: 20200109
  26. PALONOSETRON HYDROCHLORIDE [Concomitant]
     Active Substance: PALONOSETRON HYDROCHLORIDE
     Dosage: DOSE INTERVAL UNCERTAINTY
     Route: 041
     Dates: start: 20200204
  27. PALONOSETRON HYDROCHLORIDE [Concomitant]
     Active Substance: PALONOSETRON HYDROCHLORIDE
     Dosage: DOSE INTERVAL UNCERTAINTY
     Route: 041
     Dates: start: 20200401
  28. DEXAMETHASONE [Concomitant]
     Active Substance: DEXAMETHASONE
     Route: 041
     Dates: start: 20200109, end: 20200109
  29. DEXAMETHASONE [Concomitant]
     Active Substance: DEXAMETHASONE
     Route: 041
     Dates: start: 20200110, end: 20200112
  30. DEXAMETHASONE [Concomitant]
     Active Substance: DEXAMETHASONE
     Route: 041
     Dates: start: 20200204, end: 20200204
  31. DEXAMETHASONE [Concomitant]
     Active Substance: DEXAMETHASONE
     Route: 041
     Dates: start: 20200401, end: 20200401
  32. DEXAMETHASONE [Concomitant]
     Active Substance: DEXAMETHASONE
     Route: 041
     Dates: start: 20200402, end: 20200404
  33. APREPITANT [Concomitant]
     Active Substance: APREPITANT
     Route: 048
     Dates: start: 20200109
  34. APREPITANT [Concomitant]
     Active Substance: APREPITANT
     Dosage: DOSE INTERVAL UNCERTAINTY
     Route: 048
     Dates: start: 20200110
  35. APREPITANT [Concomitant]
     Active Substance: APREPITANT
     Dosage: DOSE INTERVAL UNCERTAINTY
     Route: 048
     Dates: start: 20200204, end: 20200204
  36. APREPITANT [Concomitant]
     Active Substance: APREPITANT
     Dosage: DOSE INTERVAL UNCERTAINTY
     Route: 048
     Dates: start: 20200401, end: 20200401
  37. APREPITANT [Concomitant]
     Active Substance: APREPITANT
     Dosage: DOSE INTERVAL UNCERTAINTY
     Route: 048
     Dates: start: 20200402, end: 20200403
  38. OXYCODONE [Concomitant]
     Active Substance: OXYCODONE
     Indication: Cancer pain
     Route: 048
     Dates: start: 20191210, end: 20200122
  39. OXYCODONE [Concomitant]
     Active Substance: OXYCODONE
     Route: 048
     Dates: start: 20191210, end: 20200122
  40. OXYCODONE [Concomitant]
     Active Substance: OXYCODONE
     Dosage: AT THE UNCERTAIN DOSAGE PAIN
     Route: 048
     Dates: start: 20191210, end: 20200122
  41. OXYCODONE [Concomitant]
     Active Substance: OXYCODONE
     Route: 058
     Dates: start: 20200122
  42. ATROPINE SULFATE [Concomitant]
     Active Substance: ATROPINE SULFATE
     Route: 065
     Dates: start: 20200225
  43. ATROPINE SULFATE [Concomitant]
     Active Substance: ATROPINE SULFATE
     Route: 065
     Dates: start: 20200422
  44. ATROPINE SULFATE [Concomitant]
     Active Substance: ATROPINE SULFATE
     Route: 065
     Dates: start: 20200514
  45. OLANZAPINE [Concomitant]
     Active Substance: OLANZAPINE
     Route: 048
     Dates: start: 20200225
  46. OLANZAPINE [Concomitant]
     Active Substance: OLANZAPINE
     Route: 048
     Dates: start: 20200422
  47. OLANZAPINE [Concomitant]
     Active Substance: OLANZAPINE
     Route: 048
     Dates: start: 20200514
  48. LOPERAMIDE HYDROCHLORIDE [Concomitant]
     Active Substance: LOPERAMIDE HYDROCHLORIDE
     Route: 065

REACTIONS (4)
  - Neutrophil count decreased [Recovering/Resolving]
  - White blood cell count decreased [Recovered/Resolved]
  - Disease progression [Fatal]
  - Enterocolitis [Recovered/Resolved]

NARRATIVE: CASE EVENT DATE: 20200115
